FAERS Safety Report 4659014-9 (Version None)
Quarter: 2005Q2

REPORT INFORMATION
  Report Type: 
  Country: None (occurrence: None)
  Receive Date: 20050511
  Receipt Date: 20050503
  Transmission Date: 20051028
  Serious: Yes (Other)
  Sender: FDA-Public Use
  Company Number: US-GLAXOSMITHKLINE-A0557111A

PATIENT
  Sex: Male

DRUGS (4)
  1. AVODART [Suspect]
     Indication: BENIGN PROSTATIC HYPERPLASIA
     Dosage: .5MG PER DAY
     Route: 048
  2. ANTIHYPERTENSIVE [Concomitant]
  3. ACE INHIBITOR [Concomitant]
  4. DIURETIC [Concomitant]

REACTIONS (2)
  - ANAEMIA [None]
  - RENAL FAILURE [None]
